FAERS Safety Report 6044647-8 (Version None)
Quarter: 2009Q1

REPORT INFORMATION
  Report Type: 
  Country: None (occurrence: None)
  Receive Date: 20090120
  Receipt Date: 20090108
  Transmission Date: 20090719
  Serious: Yes (Other)
  Sender: FDA-Public Use
  Company Number: BR-PFIZER INC-2008085676

PATIENT

DRUGS (2)
  1. ZOLOFT [Suspect]
     Dosage: *ONE TABLET 1X/DAY EVERY DAY TDD:ONE TAB
     Route: 048
     Dates: start: 20080101
  2. FRONTAL [Concomitant]

REACTIONS (8)
  - APATHY [None]
  - DEPRESSED MOOD [None]
  - DYSKINESIA [None]
  - DYSPHAGIA [None]
  - MASTICATION DISORDER [None]
  - MOOD ALTERED [None]
  - MUSCLE RIGIDITY [None]
  - WEIGHT DECREASED [None]
